FAERS Safety Report 8197680-4 (Version None)
Quarter: 2012Q1

REPORT INFORMATION
  Report Type: 
  Country: None (occurrence: None)
  Receive Date: 20120309
  Receipt Date: 20120228
  Transmission Date: 20120608
  Serious: Yes (Other)
  Sender: FDA-Public Use
  Company Number: US-SANOFI-AVENTIS-2012SA006799

PATIENT
  Age: 58 Year
  Sex: Female

DRUGS (4)
  1. LANTUS [Suspect]
     Dosage: DOSE:50 UNIT(S)
     Route: 058
  2. SOLOSTAR [Suspect]
     Dates: start: 20111101
  3. LANTUS [Suspect]
     Dosage: DOSE:45 UNIT(S)
     Route: 058
     Dates: start: 20111101
  4. NOVOLOG [Concomitant]

REACTIONS (11)
  - LIVER FUNCTION TEST ABNORMAL [None]
  - BLOOD GLUCOSE INCREASED [None]
  - WEIGHT DECREASED [None]
  - JOINT INJURY [None]
  - LUNG NEOPLASM MALIGNANT [None]
  - SYNCOPE [None]
  - TACHYCARDIA [None]
  - HEPATIC STEATOSIS [None]
  - WEIGHT INCREASED [None]
  - BREAST CANCER [None]
  - HYPERTENSION [None]
